FAERS Safety Report 25390277 (Version 5)
Quarter: 2025Q4

REPORT INFORMATION
  Report Type: Spontaneous
  Country: CA (occurrence: CA)
  Receive Date: 20250603
  Receipt Date: 20251203
  Transmission Date: 20260117
  Serious: Yes (Other)
  Sender: PFIZER
  Company Number: CA-PFIZER INC-202400331959

PATIENT
  Age: 77 Year
  Sex: Female

DRUGS (3)
  1. RUXIENCE [Suspect]
     Active Substance: RITUXIMAB-PVVR
     Indication: Scleroderma
     Dosage: 1 G, DAY 1 AND 15 - FIRST CYCLE IN HOSPITAL
     Route: 042
     Dates: start: 202409, end: 2024
  2. RUXIENCE [Suspect]
     Active Substance: RITUXIMAB-PVVR
     Indication: Arthritis
     Dosage: 1 G, DAY 1 AND 15 (1000MG, DAY 1 AND 15)
     Route: 042
     Dates: start: 20250515
  3. RUXIENCE [Suspect]
     Active Substance: RITUXIMAB-PVVR
     Dosage: 1000 MG, 7 WEEKS AND 6 DAYS (DAY 1 AND 15)
     Route: 042
     Dates: start: 20250709

REACTIONS (7)
  - Rectal prolapse [Recovered/Resolved]
  - Drug ineffective for unapproved indication [Unknown]
  - Anal incontinence [Unknown]
  - Urinary incontinence [Unknown]
  - Post procedural complication [Unknown]
  - Pain [Unknown]
  - Off label use [Unknown]

NARRATIVE: CASE EVENT DATE: 20240901
